FAERS Safety Report 11182634 (Version 2)
Quarter: 2016Q3

REPORT INFORMATION
  Report Type: Spontaneous
  Country: US (occurrence: US)
  Receive Date: 20150611
  Receipt Date: 20160915
  Transmission Date: 20161109
  Serious: Yes (Other)
  Sender: FDA-Public Use
  Company Number: US-ASTELLAS-2015US016643

PATIENT
  Sex: Male

DRUGS (1)
  1. XTANDI [Suspect]
     Active Substance: ENZALUTAMIDE
     Indication: PROSTATE CANCER
     Route: 048
     Dates: start: 201504, end: 201512

REACTIONS (5)
  - Malignant neoplasm progression [Unknown]
  - Dysphonia [Not Recovered/Not Resolved]
  - Prostatic specific antigen increased [Unknown]
  - Rash [Not Recovered/Not Resolved]
  - Dyskinesia [Recovering/Resolving]
